FAERS Safety Report 11448515 (Version 2)
Quarter: 2015Q3

REPORT INFORMATION
  Report Type: Spontaneous
  Country: JP (occurrence: JP)
  Receive Date: 20150902
  Receipt Date: 20150911
  Transmission Date: 20151125
  Serious: Yes (Life-Threatening, Hospitalization, Other)
  Sender: FDA-Public Use
  Company Number: JP-GSKJP-JP2015JPN123198AA

PATIENT
  Age: 77 Year
  Sex: Male

DRUGS (8)
  1. MAGNESIUM OXIDE. [Concomitant]
     Active Substance: MAGNESIUM OXIDE
     Dosage: UNK
  2. PATELL [Concomitant]
     Dosage: UNK
  3. TSUMURA YOKUKANSAN [Concomitant]
     Dosage: UNK
  4. BENIDIPINE HYDROCHLORIDE [Concomitant]
     Active Substance: BENIDIPINE HYDROCHLORIDE
     Dosage: UNK
  5. MEMARY [Concomitant]
     Active Substance: MEMANTINE HYDROCHLORIDE
     Dosage: UNK
  6. TAMSULOSIN HYDROCHLORIDE. [Concomitant]
     Active Substance: TAMSULOSIN HYDROCHLORIDE
     Dosage: UNK
  7. VALTREX [Suspect]
     Active Substance: VALACYCLOVIR HYDROCHLORIDE
     Indication: HERPES ZOSTER
     Dosage: 1000 MG, TID
     Route: 048
     Dates: start: 20150820, end: 20150823
  8. TSUMURA SYAKUYAKUKANZOTO [Concomitant]
     Dosage: UNK

REACTIONS (7)
  - Tremor [Recovering/Resolving]
  - Toxicity to various agents [Recovering/Resolving]
  - Psychiatric symptom [Not Recovered/Not Resolved]
  - Restlessness [Recovering/Resolving]
  - Acute kidney injury [Recovering/Resolving]
  - Toxic encephalopathy [Not Recovered/Not Resolved]
  - Blood creatinine increased [Recovering/Resolving]

NARRATIVE: CASE EVENT DATE: 20150823
